FAERS Safety Report 4474003-5 (Version None)
Quarter: 2004Q4

REPORT INFORMATION
  Report Type: 
  Country: None (occurrence: None)
  Receive Date: 20041008
  Receipt Date: 20040922
  Transmission Date: 20050328
  Serious: Yes (Death, Life-Threatening, Hospitalization)
  Sender: FDA-Public Use
  Company Number: US_0409105336

PATIENT
  Age: 67 Year
  Sex: Male
  Weight: 65 kg

DRUGS (16)
  1. GEMCITABINE HYDROCHLORIDE-IV (GEMCITABINE) [Suspect]
     Indication: METASTATIC NEOPLASM
     Dosage: 1830 MG OTHER
     Route: 050
     Dates: start: 20040521, end: 20040702
  2. IRINOTECAN HCL [Suspect]
     Indication: METASTATIC NEOPLASM
     Dosage: 183 MG OTHER
     Route: 050
     Dates: start: 20040521, end: 20040702
  3. IRRESA (ZD1839) [Suspect]
     Indication: METASTATIC NEOPLASM
     Dosage: 250 MG OTHER
     Route: 050
     Dates: start: 20040722, end: 20040801
  4. LANOXIN [Concomitant]
  5. PHENERGAN [Concomitant]
  6. OXYCODONE [Concomitant]
  7. IMDUR [Concomitant]
  8. PLAVIX [Concomitant]
  9. LORAZEPAM [Concomitant]
  10. AMBIEN [Concomitant]
  11. PAROXETINE [Concomitant]
  12. PREDNISONE [Concomitant]
  13. LACTULOSE [Concomitant]
  14. MORPHINE SULFATE [Concomitant]
  15. CARAFATE [Concomitant]
  16. SENOKOT [Concomitant]

REACTIONS (12)
  - COAGULOPATHY [None]
  - GASTROINTESTINAL HAEMORRHAGE [None]
  - HAEMATEMESIS [None]
  - HEPATIC FAILURE [None]
  - INTERNATIONAL NORMALISED RATIO INCREASED [None]
  - MALIGNANT NEOPLASM PROGRESSION [None]
  - MELAENA [None]
  - METASTATIC NEOPLASM [None]
  - NAUSEA [None]
  - PLATELET COUNT DECREASED [None]
  - PROTHROMBIN TIME PROLONGED [None]
  - VOMITING [None]
